FAERS Safety Report 7355390-7 (Version None)
Quarter: 2011Q1

REPORT INFORMATION
  Report Type: 
  Country: None (occurrence: None)
  Receive Date: 20110316
  Receipt Date: 20110315
  Transmission Date: 20110831
  Serious: Yes (Hospitalization)
  Sender: FDA-Public Use
  Company Number: IT-ROCHE-765334

PATIENT
  Sex: Female

DRUGS (3)
  1. TORADOL [Suspect]
     Route: 030
     Dates: start: 20110224, end: 20110224
  2. VALIUM [Suspect]
     Route: 048
     Dates: start: 20110223, end: 20110224
  3. MUSCORIL [Suspect]
     Route: 030
     Dates: start: 20110224, end: 20110224

REACTIONS (1)
  - URTICARIA [None]
